FAERS Safety Report 10197592 (Version 1)
Quarter: 2014Q2

REPORT INFORMATION
  Report Type: Spontaneous
  Country: US (occurrence: US)
  Receive Date: 20140527
  Receipt Date: 20140527
  Transmission Date: 20141212
  Serious: No
  Sender: FDA-Public Use
  Company Number: US-NOVEN-14US009073

PATIENT
  Sex: Female

DRUGS (3)
  1. MINIVELLE [Suspect]
     Indication: HOT FLUSH
     Dosage: 0.1 MG/DAY, Q 3 DAYS
     Route: 062
     Dates: start: 2014
  2. MINIVELLE [Suspect]
     Indication: NIGHT SWEATS
     Dosage: 0.1 MG/DAY, Q 3 DAYS
     Route: 062
     Dates: start: 2014
  3. MINIVELLE [Suspect]
     Dosage: 0.1 MG/DAY, Q 3 DAYS
     Route: 062

REACTIONS (7)
  - Night sweats [Not Recovered/Not Resolved]
  - Oestradiol decreased [Not Recovered/Not Resolved]
  - Drug effect decreased [Not Recovered/Not Resolved]
  - Hot flush [Not Recovered/Not Resolved]
  - Depression [Not Recovered/Not Resolved]
  - Headache [Not Recovered/Not Resolved]
  - Product quality issue [Not Recovered/Not Resolved]
